FAERS Safety Report 26139458 (Version 1)
Quarter: 2025Q4

REPORT INFORMATION
  Report Type: Spontaneous
  Country: US (occurrence: US)
  Receive Date: 20251210
  Receipt Date: 20251210
  Transmission Date: 20260117
  Serious: Yes (Other)
  Sender: ACCORD
  Company Number: US-MLMSERVICE-20251121-PI721892-00128-1

PATIENT
  Age: 54 Year
  Sex: Male

DRUGS (4)
  1. MITOMYCIN [Suspect]
     Active Substance: MITOMYCIN
     Indication: Metastases to bone
     Dosage: ADMINISTERED IN AN EMULSION.
  2. DOXORUBICIN [Suspect]
     Active Substance: DOXORUBICIN
     Indication: Follicular thyroid cancer
     Dosage: ADMINISTERED IN AN EMULSION
  3. MITOMYCIN [Suspect]
     Active Substance: MITOMYCIN
     Indication: Follicular thyroid cancer
     Dosage: ADMINISTERED IN AN EMULSION
  4. DOXORUBICIN [Suspect]
     Active Substance: DOXORUBICIN
     Indication: Metastases to bone
     Dosage: ADMINISTERED IN AN EMULSION

REACTIONS (2)
  - Myelitis transverse [Recovering/Resolving]
  - Off label use [Unknown]
